FAERS Safety Report 17042593 (Version 1)
Quarter: 2019Q4

REPORT INFORMATION
  Report Type: Spontaneous
  Country: US (occurrence: US)
  Receive Date: 20191017
  Receipt Date: 20191017
  Transmission Date: 20200122
  Serious: Yes (Disabling, Other)
  Sender: FDA-Public Use
  Company Number: None

PATIENT
  Age: 76 Year
  Sex: Female
  Weight: 66.22 kg

DRUGS (1)
  1. FAMOTIDINE 40MG PILL #5729 TEVA [Suspect]
     Active Substance: FAMOTIDINE
     Indication: DUODENOGASTRIC REFLUX
     Dosage: ?          QUANTITY:1 DF DOSAGE FORM;OTHER FREQUENCY:BEFORE DINNER;?
     Route: 048
     Dates: start: 20180507, end: 20180514

REACTIONS (5)
  - Insomnia [None]
  - Deafness unilateral [None]
  - Ear pain [None]
  - Headache [None]
  - Tinnitus [None]

NARRATIVE: CASE EVENT DATE: 20180508
